FAERS Safety Report 7167696-5 (Version None)
Quarter: 2010Q4

REPORT INFORMATION
  Report Type: 
  Country: None (occurrence: None)
  Receive Date: 20101216
  Receipt Date: 20100804
  Transmission Date: 20110411
  Serious: No
  Sender: FDA-Public Use
  Company Number: A0873940A

PATIENT
  Age: 52 Year
  Sex: Female

DRUGS (2)
  1. NICOTINE POLACRILEX [Suspect]
  2. NICOTINE POLACRILEX [Suspect]
     Dates: start: 20100701

REACTIONS (4)
  - INTENTIONAL DRUG MISUSE [None]
  - NICOTINE DEPENDENCE [None]
  - THROAT TIGHTNESS [None]
  - WHEEZING [None]
